FAERS Safety Report 8402130-6 (Version None)
Quarter: 2012Q2

REPORT INFORMATION
  Report Type: 
  Country: None (occurrence: None)
  Receive Date: 20120530
  Receipt Date: 20120518
  Transmission Date: 20120825
  Serious: Yes (Other)
  Sender: FDA-Public Use
  Company Number: IT-GDP-12413852

PATIENT
  Age: 70 Year
  Sex: Female

DRUGS (1)
  1. METRONIDAZOLE [Suspect]
     Indication: DERMATITIS
     Dosage: (1 DF BID TOPICAL)
     Route: 061
     Dates: start: 20120511, end: 20120515

REACTIONS (1)
  - ADVERSE REACTION [None]
